FAERS Safety Report 22132100 (Version 1)
Quarter: 2023Q1

REPORT INFORMATION
  Report Type: Spontaneous
  Country: US (occurrence: US)
  Receive Date: 20230323
  Receipt Date: 20230323
  Transmission Date: 20230418
  Serious: No
  Sender: FDA-Public Use
  Company Number: US-FreseniusKabi-FK202303277

PATIENT
  Age: 12 Year
  Sex: Female

DRUGS (2)
  1. METHOTREXATE [Suspect]
     Active Substance: METHOTREXATE
     Indication: B precursor type acute leukaemia
     Dosage: OVER 24 HOURS, FREQUENCY: ONCE. PHYSICIAN DECIDED TO REDUCE THE DOSE OF HER NEXT SCHEDULED CYCLE OF
     Route: 042
     Dates: end: 20230210
  2. NITISINONE [Concomitant]
     Active Substance: NITISINONE
     Indication: Tyrosinaemia
     Route: 048

REACTIONS (3)
  - Burning sensation [Unknown]
  - Blister [Unknown]
  - Stomatitis [Unknown]

NARRATIVE: CASE EVENT DATE: 20230201
